FAERS Safety Report 14291038 (Version 4)
Quarter: 2018Q2

REPORT INFORMATION
  Report Type: Report from Study
  Country: US (occurrence: US)
  Receive Date: 20171215
  Receipt Date: 20180413
  Transmission Date: 20180711
  Serious: Yes (Hospitalization)
  Sender: FDA-Public Use
  Company Number: US-EISAI MEDICAL RESEARCH-EC-2017-031682

PATIENT
  Age: 61 Year
  Sex: Female
  Weight: 63.8 kg

DRUGS (19)
  1. PRINZIDE,ZESTORETIC [Concomitant]
  2. LASIX [Concomitant]
     Active Substance: FUROSEMIDE
  3. LENVATINIB [Suspect]
     Active Substance: LENVATINIB
     Indication: RENAL CELL CARCINOMA
     Route: 048
     Dates: start: 20170613, end: 2017
  4. LENVATINIB [Suspect]
     Active Substance: LENVATINIB
     Route: 048
     Dates: start: 2017, end: 20170925
  5. CALCIUM CARB/VIT D3/MINERALS [Concomitant]
  6. MIRALAX [Concomitant]
     Active Substance: POLYETHYLENE GLYCOL 3350
  7. XANAX [Concomitant]
     Active Substance: ALPRAZOLAM
  8. LENVATINIB [Suspect]
     Active Substance: LENVATINIB
     Route: 048
     Dates: start: 20171003
  9. PEMBROLIZUMAB. [Suspect]
     Active Substance: PEMBROLIZUMAB
     Indication: RENAL CELL CARCINOMA
     Route: 041
     Dates: start: 20170613, end: 201709
  10. IMODIUM A-D [Concomitant]
     Active Substance: LOPERAMIDE HYDROCHLORIDE
  11. ZOMETA [Concomitant]
     Active Substance: ZOLEDRONIC ACID
  12. DURAGESIC [Concomitant]
     Active Substance: FENTANYL
  13. VENTOLIN [Concomitant]
     Active Substance: ALBUTEROL SULFATE
  14. MULTIVITAMIN [Concomitant]
     Active Substance: VITAMINS
  15. COLACE [Concomitant]
     Active Substance: DOCUSATE SODIUM
  16. SYNTHROID [Concomitant]
     Active Substance: LEVOTHYROXINE SODIUM
  17. COMPAZINE [Concomitant]
     Active Substance: PROCHLORPERAZINE MALEATE
  18. ROXICODONE [Concomitant]
     Active Substance: OXYCODONE HYDROCHLORIDE
  19. PEMBROLIZUMAB. [Suspect]
     Active Substance: PEMBROLIZUMAB
     Route: 041
     Dates: start: 20171003

REACTIONS (4)
  - Pneumonitis [Recovered/Resolved]
  - Haemoglobin increased [Recovered/Resolved]
  - Hypoxia [Recovered/Resolved]
  - Mental status changes [Recovered/Resolved]

NARRATIVE: CASE EVENT DATE: 20170926
